FAERS Safety Report 11857549 (Version 1)
Quarter: 2015Q4

REPORT INFORMATION
  Report Type: Report from Study
  Country: US (occurrence: US)
  Receive Date: 20151221
  Receipt Date: 20151221
  Transmission Date: 20160305
  Serious: Yes (Death, Other)
  Sender: FDA-Public Use
  Company Number: US-GILEAD-2015-0188749

PATIENT
  Age: 64 Year
  Sex: Female

DRUGS (1)
  1. RANOLAZINE [Suspect]
     Active Substance: RANOLAZINE
     Indication: ANGINA PECTORIS
     Dosage: 500 MG, QD
     Route: 048
     Dates: start: 20140515, end: 20151018

REACTIONS (1)
  - Death [Fatal]

NARRATIVE: CASE EVENT DATE: 20151018
